FAERS Safety Report 23073193 (Version 2)
Quarter: 2023Q4

REPORT INFORMATION
  Report Type: Spontaneous
  Country: US (occurrence: US)
  Receive Date: 20231017
  Receipt Date: 20231017
  Transmission Date: 20240110
  Serious: No
  Sender: FDA-Public Use
  Company Number: US-AMGEN-USASP2023179818

PATIENT
  Age: 30 Year
  Sex: Male

DRUGS (1)
  1. BLINCYTO [Suspect]
     Active Substance: BLINATUMOMAB
     Indication: Minimal residual disease
     Dosage: 196 MICROGRAM FOR SEVEN DAYS, PICC LINE
     Route: 042
     Dates: start: 20230908, end: 202309

REACTIONS (1)
  - Blister infected [Unknown]

NARRATIVE: CASE EVENT DATE: 20230913
